FAERS Safety Report 8581192-X (Version None)
Quarter: 2012Q3

REPORT INFORMATION
  Report Type: 
  Country: None (occurrence: None)
  Receive Date: 20120809
  Receipt Date: 20120731
  Transmission Date: 20120928
  Serious: Yes (Hospitalization, Other)
  Sender: FDA-Public Use
  Company Number: US-BAYER-2012-045739

PATIENT
  Age: 28 Year
  Sex: Female

DRUGS (8)
  1. DROSPIRENONE AND ETHINYL ESTRADIOL [Suspect]
     Route: 048
  2. TOPICAL OINTMENT [Concomitant]
  3. ASPIRIN [Concomitant]
  4. BENADRYL [Concomitant]
  5. ANALGESICS [Concomitant]
     Indication: MIGRAINE
  6. YASMIN [Suspect]
     Dosage: UNK
  7. YAZ [Suspect]
  8. ZYRTEC [Concomitant]

REACTIONS (8)
  - FEAR [None]
  - ANXIETY [None]
  - ANHEDONIA [None]
  - CEREBROVASCULAR ACCIDENT [None]
  - MIGRAINE [None]
  - INJURY [None]
  - PAIN [None]
  - QUALITY OF LIFE DECREASED [None]
